FAERS Safety Report 20865989 (Version 1)
Quarter: 2022Q2

REPORT INFORMATION
  Report Type: Spontaneous
  Country: US (occurrence: US)
  Receive Date: 20220524
  Receipt Date: 20220524
  Transmission Date: 20220721
  Serious: No
  Sender: FDA-Public Use
  Company Number: US-BAUSCH-BL-2022-012313

PATIENT
  Age: 69 Year
  Sex: Female
  Weight: 74.002 kg

DRUGS (4)
  1. LOTEMAX SM [Suspect]
     Active Substance: LOTEPREDNOL ETABONATE
     Indication: Eye allergy
     Dosage: ONE DROP INTO EACH EYE (STARTED ABOUT THREE MONTHS AGO)
     Route: 047
     Dates: start: 2022, end: 20220516
  2. DEVICE [Suspect]
     Active Substance: DEVICE
     Indication: Eye allergy
     Route: 065
     Dates: end: 20220516
  3. SYNTHROID [Concomitant]
     Active Substance: LEVOTHYROXINE SODIUM
     Indication: Product used for unknown indication
  4. PENTOXIFYLLINE [Concomitant]
     Active Substance: PENTOXIFYLLINE
     Indication: Product used for unknown indication
     Dosage: ER

REACTIONS (1)
  - Musculoskeletal pain [Not Recovered/Not Resolved]

NARRATIVE: CASE EVENT DATE: 20220516
